FAERS Safety Report 14193143 (Version 1)
Quarter: 2017Q4

REPORT INFORMATION
  Report Type: Spontaneous
  Country: CZ (occurrence: CZ)
  Receive Date: 20171115
  Receipt Date: 20171115
  Transmission Date: 20180321
  Serious: Yes (Hospitalization, Other)
  Sender: FDA-Public Use
  Company Number: CZ-MYLANLABS-2017M1071607

PATIENT
  Age: 17 Year
  Sex: Male
  Weight: 90 kg

DRUGS (1)
  1. VANCOMYCIN MYLAN 500 MG [Suspect]
     Active Substance: VANCOMYCIN
     Indication: ANTIBIOTIC PROPHYLAXIS
     Dates: start: 20171106, end: 20171106

REACTIONS (4)
  - Rash papular [Unknown]
  - Anaphylactoid reaction [Recovered/Resolved]
  - Erythema [Unknown]
  - Myalgia [Unknown]

NARRATIVE: CASE EVENT DATE: 20171106
